FAERS Safety Report 4450324-7 (Version None)
Quarter: 2004Q3

REPORT INFORMATION
  Report Type: 
  Country: None (occurrence: None)
  Receive Date: 20040914
  Receipt Date: 20040826
  Transmission Date: 20050211
  Serious: Yes (Death, Hospitalization)
  Sender: FDA-Public Use
  Company Number: D01200402189

PATIENT
  Age: 75 Year
  Sex: Female

DRUGS (11)
  1. (FONDAPARINUX) - SOLUTION - UNIT DOSE UNKNOWN [Suspect]
     Indication: ANGINA UNSTABLE
     Dosage: 2.5 MG QD
     Route: 058
     Dates: start: 20040511, end: 20040513
  2. ASPIRIN [Concomitant]
  3. MONOPRIL [Concomitant]
  4. BISOPROLOL FUMARATE [Concomitant]
  5. AMLODIPINE [Concomitant]
  6. QUERCETIN [Concomitant]
  7. TRENTAL [Concomitant]
  8. INSULIN [Concomitant]
  9. FUROSEMIDE [Concomitant]
  10. EUPHYLLIN (AMNIOPHYLLINE) [Concomitant]
  11. CAVINTON (VINPOCETINE) [Concomitant]

REACTIONS (7)
  - CONTRAST MEDIA REACTION [None]
  - HAEMODIALYSIS [None]
  - KIDNEY SMALL [None]
  - NEPHRITIS INTERSTITIAL [None]
  - POST PROCEDURAL COMPLICATION [None]
  - RENAL FAILURE [None]
  - ULTRASOUND KIDNEY ABNORMAL [None]
